FAERS Safety Report 8286883-6 (Version None)
Quarter: 2012Q2

REPORT INFORMATION
  Report Type: 
  Country: None (occurrence: None)
  Receive Date: 20120416
  Receipt Date: 20120410
  Transmission Date: 20120825
  Serious: Yes (Hospitalization, Other)
  Sender: FDA-Public Use
  Company Number: US-BAYER-2011-113023

PATIENT
  Age: 32 Year
  Sex: Female
  Weight: 87.075 kg

DRUGS (8)
  1. METFORMIN HCL [Concomitant]
     Indication: BLOOD GLUCOSE INCREASED
  2. LORTAB [Concomitant]
     Dosage: UNK
     Dates: start: 20070720
  3. XANAX [Concomitant]
     Indication: ANXIETY
     Dosage: UNK
     Dates: start: 20030101, end: 20100101
  4. YASMIN [Suspect]
     Dosage: UNK
     Dates: start: 20010101, end: 20070101
  5. YAZ [Suspect]
     Dosage: UNK
     Dates: start: 20010101, end: 20070101
  6. SOMA [Concomitant]
     Dosage: UNK
     Dates: start: 20070720
  7. PHENERGAN HCL [Concomitant]
     Dosage: UNK
     Dates: start: 20070720
  8. MOTRIN [Concomitant]

REACTIONS (3)
  - PAIN [None]
  - CHOLELITHIASIS [None]
  - CHOLECYSTITIS CHRONIC [None]
